FAERS Safety Report 8159087-5 (Version None)
Quarter: 2012Q1

REPORT INFORMATION
  Report Type: 
  Country: None (occurrence: None)
  Receive Date: 20120103
  Receipt Date: 20110908
  Transmission Date: 20120608
  Serious: No
  Sender: FDA-Public Use
  Company Number: AE-2011-001417

PATIENT
  Age: 49 Year
  Sex: Male
  Weight: 112.0385 kg

DRUGS (7)
  1. LEVOTHYROXINE SODIUM [Concomitant]
  2. INCIVEK [Suspect]
     Dosage: 2250 MG (750 MG, 3 IN 1 D), ORAL
     Route: 048
     Dates: start: 20110812
  3. RIBAVIRIN [Concomitant]
  4. PEGASYS [Concomitant]
  5. KLONOPIN [Concomitant]
  6. METHADONE HCL [Concomitant]
  7. LASIC (LASIC /SCH/) [Concomitant]

REACTIONS (1)
  - WEIGHT INCREASED [None]
